FAERS Safety Report 4407445-4 (Version None)
Quarter: 2004Q3

REPORT INFORMATION
  Report Type: 
  Country: None (occurrence: None)
  Receive Date: 20040723
  Receipt Date: 20040723
  Transmission Date: 20050211
  Serious: Yes (Other)
  Sender: FDA-Public Use
  Company Number: None

PATIENT
  Age: 70 Year
  Sex: Female

DRUGS (2)
  1. LEVAQUIN [Suspect]
     Indication: NEOPLASM RECURRENCE
     Dosage: 500 MG IV
     Route: 042
     Dates: start: 20040710
  2. LEVAQUIN [Suspect]
     Indication: OVARIAN CANCER
     Dosage: 500 MG IV
     Route: 042
     Dates: start: 20040710

REACTIONS (1)
  - VEIN DISCOLOURATION [None]
